FAERS Safety Report 10153136 (Version 1)
Quarter: 2014Q2

REPORT INFORMATION
  Report Type: Spontaneous
  Country: US (occurrence: US)
  Receive Date: 20140505
  Receipt Date: 20140505
  Transmission Date: 20141212
  Serious: No
  Sender: FDA-Public Use
  Company Number: US-BAYER-2014-065516

PATIENT
  Age: 93 Year
  Sex: Female
  Weight: 45 kg

DRUGS (4)
  1. ALEVE CAPLET [Suspect]
     Indication: MUSCLE SPASMS
     Dosage: 1 DF, PRN
     Route: 048
     Dates: start: 20140429
  2. DIOVAN [Concomitant]
  3. SYNTHROID [Concomitant]
  4. ENABLEX [Concomitant]

REACTIONS (3)
  - Expired product administered [None]
  - Drug ineffective [None]
  - Incorrect dose administered [None]
